FAERS Safety Report 22629304 (Version 1)
Quarter: 2023Q2

REPORT INFORMATION
  Report Type: Spontaneous
  Country: US (occurrence: US)
  Receive Date: 20230622
  Receipt Date: 20230622
  Transmission Date: 20230721
  Serious: No
  Sender: FDA-Public Use
  Company Number: US-IMPEL PHARMACEUTICALS INC-2023-SPO-TR-0224

PATIENT

DRUGS (1)
  1. DIHYDROERGOTAMINE MESYLATE [Suspect]
     Active Substance: DIHYDROERGOTAMINE MESYLATE
     Indication: Product used for unknown indication
     Dosage: UNK
     Route: 042
     Dates: start: 2022

REACTIONS (4)
  - Pain in extremity [Unknown]
  - Urticaria [Unknown]
  - Lymphadenopathy [Unknown]
  - Off label use [Unknown]

NARRATIVE: CASE EVENT DATE: 20220101
